FAERS Safety Report 5659931-7 (Version None)
Quarter: 2008Q1

REPORT INFORMATION
  Report Type: 
  Country: None (occurrence: None)
  Receive Date: 20080311
  Receipt Date: 20070813
  Transmission Date: 20080703
  Serious: No
  Sender: FDA-Public Use
  Company Number: US-BAYER-200712612BCC

PATIENT
  Sex: Male
  Weight: 86 kg

DRUGS (3)
  1. ALEVE [Suspect]
     Indication: INFLAMMATION
     Dosage: TOTAL DAILY DOSE: 440 MG  UNIT DOSE: 220 MG
     Route: 048
  2. LIPITOR [Concomitant]
  3. LEXAPRO [Concomitant]

REACTIONS (1)
  - INSOMNIA [None]
